FAERS Safety Report 9604707 (Version 3)
Quarter: 2013Q4

REPORT INFORMATION
  Report Type: Spontaneous
  Country: US (occurrence: US)
  Receive Date: 20131008
  Receipt Date: 20131227
  Transmission Date: 20140711
  Serious: No
  Sender: FDA-Public Use
  Company Number: US-PFIZER INC-2013282053

PATIENT
  Age: 52 Year
  Sex: Female
  Weight: 108.84 kg

DRUGS (25)
  1. XELJANZ [Suspect]
     Indication: RHEUMATOID ARTHRITIS
     Dosage: 5 MG, 2X/DAY
     Route: 048
  2. MULTIVITAMINS [Concomitant]
     Dosage: UNK
  3. INSULIN [Concomitant]
     Dosage: UNK
  4. LANTUS [Concomitant]
     Dosage: UNK
  5. HUMALOG [Concomitant]
     Dosage: UNK
  6. BYETTA [Concomitant]
     Dosage: UNK
  7. GABAPENTIN [Concomitant]
     Dosage: UNK
  8. ZYRTEC [Concomitant]
     Dosage: UNK
  9. LISINOPRIL W/HYDROCHLOROTHIAZIDE [Concomitant]
     Dosage: UNK
  10. FOLIC ACID [Concomitant]
     Dosage: UNK
  11. NEXIUM [Concomitant]
     Dosage: UNK
  12. METFORMIN HCL [Concomitant]
     Dosage: UNK
  13. SUPER B COMPLEX [Concomitant]
     Dosage: UNK
  14. VITAMIN C [Concomitant]
     Dosage: UNK
  15. SINGULAIR [Concomitant]
     Dosage: UNK
  16. ESTROVEN [Concomitant]
     Dosage: UNK
  17. MOBIC [Concomitant]
     Dosage: UNK
  18. LIPITOR [Concomitant]
     Dosage: UNK
  19. TYLENOL [Concomitant]
     Dosage: UNK
  20. LORAZEPAM [Concomitant]
     Dosage: UNK
  21. MELATONIN [Concomitant]
     Dosage: UNK
  22. SOMA [Concomitant]
     Dosage: UNK
  23. PERCOCET [Concomitant]
     Dosage: UNK
  24. TRAZODONE HCL [Concomitant]
     Dosage: UNK
  25. PREDNISONE [Concomitant]
     Dosage: UNK

REACTIONS (4)
  - Sinusitis [Unknown]
  - Rhinorrhoea [Unknown]
  - Rhinitis [Unknown]
  - Upper respiratory tract infection [Recovering/Resolving]
